FAERS Safety Report 4576108-7 (Version None)
Quarter: 2005Q1

REPORT INFORMATION
  Report Type: 
  Country: None (occurrence: None)
  Receive Date: 20050204
  Receipt Date: 20050110
  Transmission Date: 20050727
  Serious: Yes (Other)
  Sender: FDA-Public Use
  Company Number: 2003-06127

PATIENT
  Age: 37 Year
  Sex: Male

DRUGS (4)
  1. VIREAD [Suspect]
     Indication: HIV INFECTION
  2. ZIDOVUDINE [Suspect]
     Indication: HIV INFECTION
  3. DIDANOSINE [Suspect]
     Indication: HIV INFECTION
  4. DELAVIRDINE(DELAVIRDINE) [Suspect]

REACTIONS (5)
  - ANKLE FRACTURE [None]
  - BLOOD ALKALINE PHOSPHATASE INCREASED [None]
  - FANCONI SYNDROME ACQUIRED [None]
  - OSTEOMALACIA [None]
  - STRESS FRACTURE [None]
